FAERS Safety Report 17464061 (Version 3)
Quarter: 2020Q2

REPORT INFORMATION
  Report Type: Spontaneous
  Country: US (occurrence: US)
  Receive Date: 20200226
  Receipt Date: 20200402
  Transmission Date: 20200713
  Serious: No
  Sender: FDA-Public Use
  Company Number: US-PFIZER INC-2020085027

PATIENT
  Age: 57 Year
  Sex: Female
  Weight: 48.99 kg

DRUGS (11)
  1. ZOLOFT [Suspect]
     Active Substance: SERTRALINE HYDROCHLORIDE
     Indication: DEPRESSION
     Dosage: 125 MG, 1X/DAY
     Route: 048
  2. ZOLOFT [Suspect]
     Active Substance: SERTRALINE HYDROCHLORIDE
     Dosage: 175 MG, UNK
  3. ZOLOFT [Suspect]
     Active Substance: SERTRALINE HYDROCHLORIDE
     Indication: OBSESSIVE-COMPULSIVE DISORDER
     Dosage: 50 MG, UNK
  4. ZOLOFT [Suspect]
     Active Substance: SERTRALINE HYDROCHLORIDE
     Indication: ANXIETY
     Dosage: 100 MG, UNK
  5. KLONOPIN [Suspect]
     Active Substance: CLONAZEPAM
     Indication: PANIC ATTACK
     Dosage: 5 MG, AS NEEDED
     Dates: start: 2010
  6. KLONOPIN [Suspect]
     Active Substance: CLONAZEPAM
     Indication: ANXIETY
     Dosage: TAKES A HALF TO A FOURTH OF THE 5MG DOSE WHEN SHE IS PANICKY AND ANXIOUS
  7. ZOLOFT [Suspect]
     Active Substance: SERTRALINE HYDROCHLORIDE
     Dosage: 125 MG, UNK
  8. ZYPREXA [Suspect]
     Active Substance: OLANZAPINE
     Indication: DEPRESSION
  9. ZOLOFT [Suspect]
     Active Substance: SERTRALINE HYDROCHLORIDE
     Indication: PANIC DISORDER
     Dosage: 150 MG, UNK
  10. ZYPREXA [Suspect]
     Active Substance: OLANZAPINE
     Indication: ANXIETY
     Dosage: 2.5 MG, 1X/DAY
     Route: 048
     Dates: start: 202002
  11. ZYPREXA [Suspect]
     Active Substance: OLANZAPINE
     Indication: OBSESSIVE-COMPULSIVE DISORDER

REACTIONS (3)
  - Tremor [Recovered/Resolved]
  - Fear [Recovered/Resolved]
  - Drug ineffective [Recovered/Resolved]
